FAERS Safety Report 22640811 (Version 1)
Quarter: 2023Q2

REPORT INFORMATION
  Report Type: Report from Study
  Country: IT (occurrence: IT)
  Receive Date: 20230626
  Receipt Date: 20230626
  Transmission Date: 20230721
  Serious: Yes (Hospitalization, Other)
  Sender: FDA-Public Use
  Company Number: None

PATIENT
  Age: 43 Year
  Sex: Male

DRUGS (2)
  1. EN [Suspect]
     Active Substance: DELORAZEPAM
     Indication: Product used for unknown indication
     Dosage: UNIT: DROPS, FREQUENCY: TOTAL, ROA: ORAL
     Route: 048
     Dates: start: 20230506, end: 20230606
  2. OLANZAPINE [Suspect]
     Active Substance: OLANZAPINE
     Indication: Product used for unknown indication
     Dosage: DOSAGE: 14, UNIT: DOSING UNIT, FREQUENCY: TOTAL
     Route: 048
     Dates: start: 20230606, end: 20230606

REACTIONS (3)
  - Sopor [Unknown]
  - Restlessness [Unknown]
  - Drug abuse [Unknown]

NARRATIVE: CASE EVENT DATE: 20230606
